FAERS Safety Report 18524725 (Version 1)
Quarter: 2020Q4

REPORT INFORMATION
  Report Type: Spontaneous
  Country: US (occurrence: US)
  Receive Date: 20201119
  Receipt Date: 20201119
  Transmission Date: 20210114
  Serious: Yes (Death, Other)
  Sender: FDA-Public Use
  Company Number: US-PURDUE-USA-2020-0164726

PATIENT
  Age: 50 Year
  Sex: Male
  Weight: 129 kg

DRUGS (5)
  1. ACETAMINOPHEN. [Suspect]
     Active Substance: ACETAMINOPHEN
     Indication: PRODUCT USED FOR UNKNOWN INDICATION
     Dosage: UNK
     Route: 065
  2. AMITRIPTYLINE [Suspect]
     Active Substance: AMITRIPTYLINE
     Indication: PRODUCT USED FOR UNKNOWN INDICATION
     Dosage: UNK
     Route: 065
  3. OXYCODONE HYDROCHLORIDE (SIMILAR TO NDA 22-272) [Suspect]
     Active Substance: OXYCODONE HYDROCHLORIDE
     Indication: PRODUCT USED FOR UNKNOWN INDICATION
     Dosage: UNK
     Route: 048
  4. OXYCONTIN [Suspect]
     Active Substance: OXYCODONE HYDROCHLORIDE
     Indication: PRODUCT USED FOR UNKNOWN INDICATION
     Dosage: UNK
     Route: 048
  5. ALPRAZOLAM. [Suspect]
     Active Substance: ALPRAZOLAM
     Indication: PRODUCT USED FOR UNKNOWN INDICATION
     Dosage: UNK
     Route: 065

REACTIONS (16)
  - Depressed level of consciousness [Fatal]
  - Hepatomegaly [Unknown]
  - Road traffic accident [Unknown]
  - Drug dependence [Unknown]
  - Hyperlipidaemia [Unknown]
  - Drug interaction [Fatal]
  - Pulmonary oedema [Unknown]
  - Coronary artery stenosis [Unknown]
  - Splenomegaly [Unknown]
  - Substance abuse [Unknown]
  - Cardiomegaly [Unknown]
  - Drug abuse [Unknown]
  - Arteriosclerosis coronary artery [Unknown]
  - Gastrooesophageal reflux disease [Unknown]
  - Overdose [Unknown]
  - Visceral congestion [Unknown]

NARRATIVE: CASE EVENT DATE: 20091218
